FAERS Safety Report 5330833-9 (Version None)
Quarter: 2007Q2

REPORT INFORMATION
  Report Type: 
  Country: None (occurrence: None)
  Receive Date: 20070517
  Receipt Date: 20070517
  Transmission Date: 20071010
  Serious: No
  Sender: FDA-Public Use
  Company Number: None

PATIENT
  Sex: Female
  Weight: 66.6788 kg

DRUGS (1)
  1. ESTRADIOL [Suspect]
     Dosage: 1 MG 1 M DAILY PO
     Route: 048

REACTIONS (3)
  - CONDITION AGGRAVATED [None]
  - HOT FLUSH [None]
  - THERAPEUTIC RESPONSE UNEXPECTED WITH DRUG SUBSTITUTION [None]
